FAERS Safety Report 24457460 (Version 1)
Quarter: 2024Q4

REPORT INFORMATION
  Report Type: Report from Study
  Country: US (occurrence: US)
  Receive Date: 20241018
  Receipt Date: 20241018
  Transmission Date: 20250114
  Serious: Yes (Hospitalization, Other)
  Sender: ACADIA PHARMACEUTICALS
  Company Number: US-ACADIA PHARMACEUTICALS INC.-ACA-2024-TRF-005831

PATIENT
  Sex: Female

DRUGS (1)
  1. DAYBUE [Suspect]
     Active Substance: TROFINETIDE
     Indication: Rett syndrome
     Dosage: 60 MILLILITER, BID
     Route: 048

REACTIONS (7)
  - Loss of consciousness [Recovering/Resolving]
  - Pneumonia [Recovering/Resolving]
  - Endotracheal intubation [Recovering/Resolving]
  - Hypervolaemia [Recovering/Resolving]
  - Gastrostomy [Recovering/Resolving]
  - Decubitus ulcer [Not Recovered/Not Resolved]
  - Weight decreased [Not Recovered/Not Resolved]
